FAERS Safety Report 4841684-3 (Version None)
Quarter: 2005Q4

REPORT INFORMATION
  Report Type: 
  Country: None (occurrence: None)
  Receive Date: 20051125
  Receipt Date: 20051107
  Transmission Date: 20060501
  Serious: Yes (Death)
  Sender: FDA-Public Use
  Company Number: 2005-BP-00168RO

PATIENT
  Age: 15 Month
  Sex: Male
  Weight: 10.4 kg

DRUGS (1)
  1. METHADONE HCL [Suspect]
     Dosage: (SEE TEXT, ONCE), PO
     Route: 048

REACTIONS (5)
  - ACCIDENTAL DRUG INTAKE BY CHILD [None]
  - DRUG TOXICITY [None]
  - DYSPNOEA [None]
  - PNEUMONIA [None]
  - RESPIRATORY DEPRESSION [None]
